FAERS Safety Report 19097940 (Version 1)
Quarter: 2021Q2

REPORT INFORMATION
  Report Type: Spontaneous
  Country: US (occurrence: US)
  Receive Date: 20210406
  Receipt Date: 20210406
  Transmission Date: 20210717
  Serious: Yes (Hospitalization)
  Sender: FDA-Public Use
  Company Number: None

PATIENT
  Age: 52 Year
  Sex: Female

DRUGS (16)
  1. HUMIRA [Suspect]
     Active Substance: ADALIMUMAB
     Indication: RHEUMATOID ARTHRITIS
     Dosage: FREQUENCY: EVERY 2 WEEKS
     Route: 058
     Dates: start: 20210104
  2. DULOXETINE. [Concomitant]
     Active Substance: DULOXETINE
  3. CELECOXIB. [Concomitant]
     Active Substance: CELECOXIB
  4. LEVOTHYROXIN [Concomitant]
     Active Substance: LEVOTHYROXINE
  5. HYDROCO/APAP [Concomitant]
     Active Substance: ACETAMINOPHEN\HYDROCODONE
  6. WARFARIN [Concomitant]
     Active Substance: WARFARIN
  7. FLUOXETINE [Concomitant]
     Active Substance: FLUOXETINE HYDROCHLORIDE
  8. CYCLOBENZAPR [Concomitant]
     Active Substance: CYCLOBENZAPRINE
  9. FLUTICASONE. [Concomitant]
     Active Substance: FLUTICASONE
  10. GABAPENTIN. [Concomitant]
     Active Substance: GABAPENTIN
  11. METHOTREXATE. [Concomitant]
     Active Substance: METHOTREXATE
  12. PREMARIN [Concomitant]
     Active Substance: ESTROGENS, CONJUGATED
  13. METFORMIN [Concomitant]
     Active Substance: METFORMIN HYDROCHLORIDE
  14. HYDROCHLOROT [Concomitant]
     Active Substance: HYDROCHLOROTHIAZIDE
  15. ATORVASTATI N [Concomitant]
  16. FOLINIC ?PLUS [Concomitant]

REACTIONS (1)
  - Pneumonia [None]

NARRATIVE: CASE EVENT DATE: 20210326
